FAERS Safety Report 18207366 (Version 1)
Quarter: 2020Q3

REPORT INFORMATION
  Report Type: Spontaneous
  Country: US (occurrence: US)
  Receive Date: 20200828
  Receipt Date: 20200828
  Transmission Date: 20201103
  Serious: Yes (Other)
  Sender: FDA-Public Use
  Company Number: None

PATIENT
  Age: 54 Year
  Sex: Female
  Weight: 122.4 kg

DRUGS (6)
  1. GLIPIZIDE 10 MG TWICE DAILY [Concomitant]
  2. ATORVASTATIN 40 MG DAILY [Concomitant]
     Dates: start: 20180724
  3. TRULICITY [Suspect]
     Active Substance: DULAGLUTIDE
     Indication: DIABETES MELLITUS
     Dosage: ?          OTHER FREQUENCY:ONCE WEEKLY;?
     Route: 058
     Dates: start: 20200710
  4. METFORMIN 1000 MG TWICE DAILY [Concomitant]
     Dates: start: 20131125
  5. VALSARTAN/HCTZ 320/25 ONCE DAILY [Concomitant]
     Dates: start: 20160506
  6. MIRALAX [Concomitant]
     Active Substance: POLYETHYLENE GLYCOL 3350

REACTIONS (5)
  - Injection site erythema [None]
  - Skin disorder [None]
  - Injection site pruritus [None]
  - Injection site reaction [None]
  - Symptom recurrence [None]

NARRATIVE: CASE EVENT DATE: 20200710
